FAERS Safety Report 7814474-7 (Version None)
Quarter: 2011Q4

REPORT INFORMATION
  Report Type: 
  Country: None (occurrence: None)
  Receive Date: 20111014
  Receipt Date: 20111010
  Transmission Date: 20120403
  Serious: Yes (Hospitalization)
  Sender: FDA-Public Use
  Company Number: PHHO2009DE07179

PATIENT
  Sex: Male
  Weight: 87 kg

DRUGS (6)
  1. EVEROLIMUS [Suspect]
     Indication: RENAL TRANSPLANT
     Dosage: 0.5 MG, BID
     Route: 048
     Dates: start: 20090201, end: 20090610
  2. CALCIUM CARBONATE [Concomitant]
  3. MYFORTIC [Suspect]
     Indication: RENAL TRANSPLANT
     Dosage: OPEN-LABEL
     Route: 048
     Dates: start: 20090201, end: 20090610
  4. IMMUNOSUPPRESSANTS [Concomitant]
  5. METHYLPREDNISOLONE [Suspect]
     Indication: RENAL TRANSPLANT
     Dosage: 360 MG, BID
     Route: 048
     Dates: start: 20090201, end: 20090610
  6. VITAMIN D [Concomitant]

REACTIONS (4)
  - RENAL FAILURE ACUTE [None]
  - KIDNEY TRANSPLANT REJECTION [None]
  - PNEUMONIA [None]
  - RESPIRATORY FAILURE [None]
